FAERS Safety Report 7403461-9 (Version None)
Quarter: 2011Q2

REPORT INFORMATION
  Report Type: 
  Country: None (occurrence: None)
  Receive Date: 20110408
  Receipt Date: 20110331
  Transmission Date: 20111010
  Serious: Yes (Hospitalization, Disabling)
  Sender: FDA-Public Use
  Company Number: B0710186A

PATIENT
  Sex: Female
  Weight: 52 kg

DRUGS (5)
  1. ARIXTRA [Suspect]
     Indication: THROMBOSIS PROPHYLAXIS
     Dosage: 2.5MG PER DAY
     Route: 058
     Dates: start: 20110101, end: 20110101
  2. STILNOX [Concomitant]
     Indication: INSOMNIA
     Route: 065
  3. PROZAC [Concomitant]
     Indication: DEPRESSION
     Route: 065
  4. TEMESTA [Concomitant]
     Indication: DEPRESSION
     Route: 065
  5. LEVOTHYROX [Concomitant]
     Indication: THYROIDECTOMY
     Route: 065

REACTIONS (5)
  - OFF LABEL USE [None]
  - SPINAL HAEMATOMA [None]
  - INCISION SITE HAEMORRHAGE [None]
  - CAUDA EQUINA SYNDROME [None]
  - SPINAL CORD COMPRESSION [None]
